FAERS Safety Report 9602300 (Version 1)
Quarter: 2013Q4

REPORT INFORMATION
  Report Type: Report from Study
  Country: LB (occurrence: LB)
  Receive Date: 20131007
  Receipt Date: 20131007
  Transmission Date: 20140711
  Serious: Yes (Hospitalization)
  Sender: FDA-Public Use
  Company Number: LB-SA-2013SA098284

PATIENT
  Age: 78 Year
  Sex: Female

DRUGS (7)
  1. LANTUS SOLOSTAR [Suspect]
     Indication: DIABETES MELLITUS
     Route: 058
  2. SOLOSTAR [Concomitant]
  3. COAPROVEL [Concomitant]
     Indication: DIABETES MELLITUS
     Route: 048
  4. ACTONEL [Concomitant]
     Route: 048
  5. ATORVASTATIN [Concomitant]
     Route: 048
  6. PRAXILENE [Concomitant]
     Route: 048
  7. OMEPRAZOLE [Concomitant]
     Route: 048

REACTIONS (2)
  - Blood uric acid increased [Recovered/Resolved]
  - Oedema peripheral [Recovered/Resolved]
